FAERS Safety Report 8497624-1 (Version None)
Quarter: 2012Q3

REPORT INFORMATION
  Report Type: 
  Country: None (occurrence: None)
  Receive Date: 20120709
  Receipt Date: 20120612
  Transmission Date: 20120928
  Serious: No
  Sender: FDA-Public Use
  Company Number: US-AMGEN-USASP2011023316

PATIENT
  Age: 41 Year
  Sex: Female

DRUGS (2)
  1. ENBREL [Suspect]
     Dosage: UNK
     Dates: start: 20110407
  2. ENBREL [Suspect]
     Indication: PSORIASIS
     Dosage: 40 MG, QWK
     Route: 058
     Dates: start: 20110317

REACTIONS (2)
  - DIZZINESS [None]
  - VERTIGO POSITIONAL [None]
